FAERS Safety Report 23138829 (Version 1)
Quarter: 2023Q4

REPORT INFORMATION
  Report Type: Spontaneous
  Country: CN (occurrence: CN)
  Receive Date: 20231102
  Receipt Date: 20231102
  Transmission Date: 20240109
  Serious: Yes (Other)
  Sender: FDA-Public Use
  Company Number: CN-BAYER-2023A156362

PATIENT
  Age: 74 Year
  Sex: Male
  Weight: 75 kg

DRUGS (2)
  1. GLUCOBAY [Suspect]
     Active Substance: ACARBOSE
     Indication: Diabetes mellitus
     Dosage: 1 DF, ONCE IN THE MORNING
     Route: 048
     Dates: start: 20231026, end: 20231026
  2. GLUCOBAY [Suspect]
     Active Substance: ACARBOSE
     Indication: Diabetes mellitus
     Dosage: 2 DF, ONCE
     Route: 048
     Dates: start: 20231026, end: 20231026

REACTIONS (9)
  - Hypoglycaemic coma [Recovering/Resolving]
  - Loss of consciousness [Recovered/Resolved]
  - Pallor [Recovered/Resolved]
  - Mobility decreased [Recovered/Resolved]
  - Heart rate decreased [Recovered/Resolved]
  - Respiratory rate increased [None]
  - Blood pressure decreased [Recovered/Resolved]
  - Product dose omission in error [None]
  - Incorrect dose administered [None]

NARRATIVE: CASE EVENT DATE: 20231026
